FAERS Safety Report 10337505 (Version 2)
Quarter: 2017Q3

REPORT INFORMATION
  Report Type: Spontaneous
  Country: US (occurrence: US)
  Receive Date: 20140724
  Receipt Date: 20170918
  Transmission Date: 20171127
  Serious: Yes (Other)
  Sender: FDA-Public Use
  Company Number: US-ROCHE-1437619

PATIENT
  Age: 64 Year
  Sex: Female

DRUGS (3)
  1. PROLIA [Suspect]
     Active Substance: DENOSUMAB
     Indication: OSTEOPENIA
     Route: 065
     Dates: start: 201106
  2. BONIVA [Suspect]
     Active Substance: IBANDRONATE SODIUM
     Indication: OSTEOPOROSIS
     Route: 048
     Dates: start: 2005, end: 2012
  3. FOSAMAX [Suspect]
     Active Substance: ALENDRONATE SODIUM
     Indication: OSTEOPOROSIS
     Route: 048
     Dates: start: 2001, end: 2007

REACTIONS (5)
  - Emotional distress [Unknown]
  - Low turnover osteopathy [Unknown]
  - Femur fracture [Unknown]
  - Wrist fracture [Unknown]
  - Anxiety [Unknown]

NARRATIVE: CASE EVENT DATE: 20130421
